FAERS Safety Report 9263637 (Version 1)
Quarter: 2013Q1

REPORT INFORMATION
  Report Type: Spontaneous
  Country: US (occurrence: None)
  Receive Date: 20121212
  Receipt Date: 20121212
  Transmission Date: 20140127
  Serious: No
  Sender: FDA-Public Use
  Company Number: 1211USA000250

PATIENT
  Age: 49 Year
  Sex: Female

DRUGS (2)
  1. PEGINTRON [Suspect]
     Indication: HEPATITIS C
     Dates: start: 20121005
  2. RIBAVIRIN [Suspect]

REACTIONS (15)
  - Nausea [None]
  - Aphagia [None]
  - Dehydration [None]
  - Depression [None]
  - Headache [None]
  - Pain [None]
  - Chills [None]
  - Influenza like illness [None]
  - Weight decreased [None]
  - Fatigue [None]
  - Vomiting [None]
  - Dizziness [None]
  - Asthenia [None]
  - Anaemia [None]
  - Nervous system disorder [None]
